FAERS Safety Report 6818940-2 (Version None)
Quarter: 2010Q3

REPORT INFORMATION
  Report Type: 
  Country: None (occurrence: None)
  Receive Date: 20100707
  Receipt Date: 20100628
  Transmission Date: 20110219
  Serious: No
  Sender: FDA-Public Use
  Company Number: US-BIOGENIDEC-2010BI021902

PATIENT
  Age: 24 Year
  Sex: Male

DRUGS (1)
  1. AVONEX [Suspect]
     Indication: MULTIPLE SCLEROSIS
     Route: 030
     Dates: start: 20030503, end: 20100301

REACTIONS (6)
  - BALANCE DISORDER [None]
  - FATIGUE [None]
  - HYPOAESTHESIA [None]
  - JOINT LOCK [None]
  - PARAESTHESIA [None]
  - VISION BLURRED [None]
